FAERS Safety Report 16063219 (Version 3)
Quarter: 2019Q2

REPORT INFORMATION
  Report Type: Report from Study
  Country: US (occurrence: US)
  Receive Date: 20190312
  Receipt Date: 20190516
  Transmission Date: 20190711
  Serious: No
  Sender: FDA-Public Use
  Company Number: US-ALEXION PHARMACEUTICALS INC.-A201903504

PATIENT
  Sex: Male

DRUGS (1)
  1. SOLIRIS [Suspect]
     Active Substance: ECULIZUMAB
     Indication: PRODUCT USED FOR UNKNOWN INDICATION
     Dosage: UNK
     Route: 065

REACTIONS (7)
  - Speech disorder [Unknown]
  - Hypersensitivity [Unknown]
  - Abnormal behaviour [Unknown]
  - Speech rehabilitation [Unknown]
  - Head banging [Unknown]
  - Headache [Unknown]
  - Nasopharyngitis [Unknown]
